FAERS Safety Report 8861827 (Version 1)
Quarter: 2012Q4

REPORT INFORMATION
  Report Type: Spontaneous
  Country: CN (occurrence: None)
  Receive Date: 20121023
  Receipt Date: 20121023
  Transmission Date: 20130627
  Serious: Yes (Hospitalization)
  Sender: FDA-Public Use
  Company Number: VAL_00933_2012

PATIENT
  Sex: Female
  Weight: 63 kg

DRUGS (9)
  1. ROCALTROL [Suspect]
     Route: 048
     Dates: start: 20070201
  2. CELLCEPT [Suspect]
     Dosage: in the morning
     Route: 048
     Dates: start: 20070201
  3. CELLCEPT [Suspect]
     Dosage: in the evening
     Route: 048
     Dates: end: 2011
  4. CELLCEPT [Suspect]
     Route: 048
     Dates: end: 2011
  5. SANDIMMUN [Suspect]
     Dosage: DF
     Route: 048
     Dates: start: 20070201, end: 20070201
  6. PROGRAF [Suspect]
     Route: 048
     Dates: start: 2007, end: 2012
  7. PROGRAF [Suspect]
     Route: 048
     Dates: start: 2012
  8. MEDROL [Concomitant]
  9. BAILING -CHINESE TRADITIONAL MEDICINE NOS [Concomitant]

REACTIONS (8)
  - Transaminases increased [None]
  - Blood creatinine increased [None]
  - Lung infection [None]
  - Urinary tract infection [None]
  - Nasopharyngitis [None]
  - Ligament sprain [None]
  - Contusion [None]
  - Kyphosis [None]
